FAERS Safety Report 9264230 (Version 1)
Quarter: 2013Q2

REPORT INFORMATION
  Report Type: Spontaneous
  Country: BR (occurrence: BR)
  Receive Date: 20130430
  Receipt Date: 20130430
  Transmission Date: 20140414
  Serious: Yes (Other)
  Sender: FDA-Public Use
  Company Number: PHHY2013BR041181

PATIENT
  Age: 68 Year
  Sex: Male

DRUGS (2)
  1. BUFFERIN [Suspect]
     Indication: POLYCYTHAEMIA
     Dosage: 81 MG, QD
  2. CRESTOR [Suspect]

REACTIONS (4)
  - Carotid artery thrombosis [Recovering/Resolving]
  - Dizziness [Recovered/Resolved]
  - Balance disorder [Recovered/Resolved]
  - Malaise [Not Recovered/Not Resolved]
